FAERS Safety Report 10068141 (Version 2)
Quarter: 2014Q2

REPORT INFORMATION
  Report Type: Spontaneous
  Country: JP (occurrence: JP)
  Receive Date: 20140409
  Receipt Date: 20140428
  Transmission Date: 20141212
  Serious: Yes (Other)
  Sender: FDA-Public Use
  Company Number: JP-PFIZER INC-2014095656

PATIENT
  Age: 65 Year
  Sex: Male

DRUGS (8)
  1. CABERGOLINE [Suspect]
     Indication: PARKINSON^S DISEASE
     Dosage: 1 MG, DAILY
  2. ROPINIROLE [Suspect]
     Indication: PARKINSON^S DISEASE
     Dosage: 5 MG, DAILY
  3. LEVODOPA [Suspect]
     Indication: BRADYKINESIA
     Dosage: 400 MG, DAILY
  4. LEVODOPA [Suspect]
     Indication: RESTING TREMOR
  5. LEVODOPA [Suspect]
     Indication: MUSCLE RIGIDITY
  6. ENTACAPONE [Suspect]
     Indication: PARKINSON^S DISEASE
     Dosage: 800 MG, DAILY
  7. ZONISAMIDE [Suspect]
     Indication: PARKINSON^S DISEASE
     Dosage: 25 MG, DAILY
  8. DROXIDOPA [Suspect]
     Indication: PARKINSON^S DISEASE
     Dosage: 100 MG, DAILY

REACTIONS (1)
  - Jealous delusion [Recovered/Resolved]
